FAERS Safety Report 5328538-3 (Version None)
Quarter: 2007Q2

REPORT INFORMATION
  Report Type: 
  Country: None (occurrence: None)
  Receive Date: 20070518
  Receipt Date: 20070516
  Transmission Date: 20071010
  Serious: Yes (Life-Threatening, Hospitalization)
  Sender: FDA-Public Use
  Company Number: DE-AVENTIS-200711074DE

PATIENT
  Age: 55 Year
  Sex: Female

DRUGS (2)
  1. APIDRA [Suspect]
     Dosage: DOSE: NOT REPORTED
  2. INSULIN PUMP [Suspect]

REACTIONS (8)
  - BLOOD GLUCOSE INCREASED [None]
  - COMA [None]
  - DEHYDRATION [None]
  - DISORIENTATION [None]
  - DRUG INEFFECTIVE [None]
  - HYPOTENSION [None]
  - PHARMACEUTICAL PRODUCT COMPLAINT [None]
  - SOMNOLENCE [None]
